FAERS Safety Report 7962043-0 (Version None)
Quarter: 2011Q4

REPORT INFORMATION
  Report Type: 
  Country: None (occurrence: None)
  Receive Date: 20111207
  Receipt Date: 20111128
  Transmission Date: 20120403
  Serious: Yes (Other)
  Sender: FDA-Public Use
  Company Number: US-JNJFOC-20111112202

PATIENT
  Sex: Male
  Weight: 75.75 kg

DRUGS (8)
  1. SIMVASTATIN [Concomitant]
     Route: 065
  2. BENZTROPINE MESYLATE [Concomitant]
     Route: 065
  3. RISPERDAL [Suspect]
     Indication: AUTISM
     Route: 065
  4. RISPERDAL [Suspect]
     Route: 065
  5. TOPIRAMATE [Suspect]
     Indication: AUTISM
     Route: 048
     Dates: start: 20110101
  6. DEPAKOTE [Suspect]
     Indication: PRODUCT USED FOR UNKNOWN INDICATION
     Route: 065
  7. ZOLOFT [Concomitant]
     Route: 065
  8. ZYPREXA [Concomitant]
     Route: 065

REACTIONS (6)
  - WEIGHT DECREASED [None]
  - AGGRESSION [None]
  - SOCIAL PROBLEM [None]
  - BLINDNESS [None]
  - INJURY CORNEAL [None]
  - ADVERSE EVENT [None]
